FAERS Safety Report 4402319-7 (Version None)
Quarter: 2004Q3

REPORT INFORMATION
  Report Type: 
  Country: None (occurrence: None)
  Receive Date: 20040716
  Receipt Date: 20040707
  Transmission Date: 20050211
  Serious: Yes (Death, Hospitalization)
  Sender: FDA-Public Use
  Company Number: HQWYE305907JUN04

PATIENT
  Age: 83 Year
  Sex: Male

DRUGS (5)
  1. CORDARONE [Suspect]
     Dosage: 400 MG/D FIVE DAYS PER WEEK; UNKNOWN
     Route: 065
  2. CAPTOPRIL [Concomitant]
  3. FUROSEMIDE [Concomitant]
  4. ASPIRIN [Concomitant]
  5. ACENOCOUMAROL [Concomitant]

REACTIONS (13)
  - ASCITES [None]
  - BILIARY CIRRHOSIS [None]
  - BLOOD THYROID STIMULATING HORMONE INCREASED [None]
  - COAGULOPATHY [None]
  - HAEMATEMESIS [None]
  - HAEMOCHROMATOSIS [None]
  - HEPATITIS [None]
  - HEPATOJUGULAR REFLUX [None]
  - HEPATOMEGALY [None]
  - IMMUNOGLOBULINS INCREASED [None]
  - OEDEMA PERIPHERAL [None]
  - PORTAL HYPERTENSION [None]
  - PULMONARY FIBROSIS [None]
